FAERS Safety Report 4736485-0 (Version None)
Quarter: 2005Q3

REPORT INFORMATION
  Report Type: 
  Country: None (occurrence: None)
  Receive Date: 20050804
  Receipt Date: 20050804
  Transmission Date: 20060218
  Serious: Yes (Other)
  Sender: FDA-Public Use
  Company Number: None

PATIENT
  Age: 37 Year
  Sex: Female
  Weight: 61.2356 kg

DRUGS (2)
  1. LEXAPRO [Suspect]
     Indication: DEPRESSION
     Dosage: PO 15 -} 20MG
     Route: 048
     Dates: start: 20050628
  2. LEXAPRO [Suspect]
     Indication: DEPRESSION
     Dosage: PO 15 -} 20MG
     Route: 048
     Dates: start: 20050729

REACTIONS (3)
  - FEELING ABNORMAL [None]
  - HALLUCINATION, VISUAL [None]
  - PALPITATIONS [None]
